FAERS Safety Report 8103478-5 (Version None)
Quarter: 2012Q1

REPORT INFORMATION
  Report Type: 
  Country: None (occurrence: None)
  Receive Date: 20120201
  Receipt Date: 20120125
  Transmission Date: 20120608
  Serious: Yes (Hospitalization)
  Sender: FDA-Public Use
  Company Number: PHEH2012US002256

PATIENT
  Sex: Male

DRUGS (5)
  1. AFINITOR [Suspect]
     Indication: METASTATIC RENAL CELL CARCINOMA
     Dosage: 10 MG, QD
     Route: 048
  2. COUMADIN [Concomitant]
  3. VITAMINS NOS [Concomitant]
  4. PRILOSEC [Concomitant]
  5. HYDROCODONE BITARTRATE [Concomitant]

REACTIONS (4)
  - STEVENS-JOHNSON SYNDROME [None]
  - SECRETION DISCHARGE [None]
  - RASH [None]
  - FLUID RETENTION [None]
